FAERS Safety Report 8365493-6 (Version None)
Quarter: 2012Q2

REPORT INFORMATION
  Report Type: 
  Country: None (occurrence: None)
  Receive Date: 20120516
  Receipt Date: 20120511
  Transmission Date: 20120825
  Serious: Yes (Hospitalization, Other)
  Sender: FDA-Public Use
  Company Number: US-BAYER-2012-047414

PATIENT
  Age: 20 Year
  Sex: Female
  Weight: 149 kg

DRUGS (3)
  1. YASMIN [Suspect]
  2. NAPROXEN (ALEVE) [Concomitant]
  3. KEFLEX [Concomitant]

REACTIONS (2)
  - THROMBOPHLEBITIS SUPERFICIAL [None]
  - DEEP VEIN THROMBOSIS [None]
